FAERS Safety Report 8536060-6 (Version None)
Quarter: 2012Q3

REPORT INFORMATION
  Report Type: 
  Country: None (occurrence: None)
  Receive Date: 20120718
  Receipt Date: 20120718
  Transmission Date: 20120928
  Serious: Yes (Other)
  Sender: FDA-Public Use
  Company Number: None

PATIENT
  Age: 29 Year
  Sex: Male
  Weight: 83.2 kg

DRUGS (1)
  1. NPLATE (ROMIPLOSTIM) ADMINISTERED AT HOSPITAL AMGEN THOUSAND OAKS, CA [Suspect]
     Indication: IDIOPATHIC THROMBOCYTOPENIC PURPURA
     Dosage: 521 MCG WEEKLY 057
     Dates: start: 20110310, end: 20120621

REACTIONS (3)
  - FOLLICULITIS [None]
  - LEUKOPENIA [None]
  - GRANULOCYTE COUNT DECREASED [None]
